FAERS Safety Report 10191991 (Version 2)
Quarter: 2014Q2

REPORT INFORMATION
  Report Type: Spontaneous
  Country: US (occurrence: US)
  Receive Date: 20140523
  Receipt Date: 20140529
  Transmission Date: 20141212
  Serious: No
  Sender: FDA-Public Use
  Company Number: US-009507513-1405USA007504

PATIENT
  Sex: Female

DRUGS (4)
  1. DULERA [Suspect]
     Indication: ASTHMA
     Dosage: ONE PUFF EVERY OTHER DAY
     Route: 055
     Dates: start: 201404
  2. METFORMIN [Concomitant]
  3. GLIMEPIRIDE [Concomitant]
  4. INSULIN [Concomitant]

REACTIONS (3)
  - Blood glucose increased [Not Recovered/Not Resolved]
  - Inappropriate schedule of drug administration [Unknown]
  - Underdose [Unknown]
